FAERS Safety Report 6238151-1 (Version None)
Quarter: 2009Q2

REPORT INFORMATION
  Report Type: 
  Country: None (occurrence: None)
  Receive Date: 20090622
  Receipt Date: 20090615
  Transmission Date: 20091009
  Serious: No
  Sender: FDA-Public Use
  Company Number: AU-JNJFOC-20090602036

PATIENT
  Sex: Male
  Weight: 60 kg

DRUGS (3)
  1. DURAGESIC-100 [Suspect]
     Indication: DRUG USE FOR UNKNOWN INDICATION
     Dosage: PRN
     Route: 062
  2. OXYCONTIN [Concomitant]
     Route: 065
  3. ENDONE [Concomitant]
     Dosage: PRN
     Route: 065

REACTIONS (3)
  - APPLICATION SITE RASH [None]
  - DRUG ADMINISTERED AT INAPPROPRIATE SITE [None]
  - OFF LABEL USE [None]
